FAERS Safety Report 9250552 (Version 1)
Quarter: 2013Q1

REPORT INFORMATION
  Report Type: Spontaneous
  Country: US (occurrence: None)
  Receive Date: 20130305
  Receipt Date: 20130305
  Transmission Date: 20140127
  Serious: Yes (Other)
  Sender: FDA-Public Use
  Company Number: 163-21880-12062560

PATIENT
  Age: 86 Year
  Sex: Female

DRUGS (8)
  1. REVLIMID [Suspect]
     Indication: MYELODYSPLASTIC SYNDROME
     Route: 048
     Dates: start: 200901, end: 200903
  2. REVLIMID [Suspect]
     Indication: PLASMA CELL MYELOMA
     Route: 048
     Dates: start: 200901, end: 200903
  3. FENTANYL (FENTANYL) [Concomitant]
  4. METHADONE (METHADONE) [Concomitant]
  5. GABAPENTIN (GABAPENTIN) [Concomitant]
  6. CALCIUM WITH VITAMIN D (CALCIUM WITH VITAMIN D) [Concomitant]
  7. SIMVASTATIN (SIMVASTATIN) [Concomitant]
  8. METOPROLOL (METOPROLOL) [Concomitant]

REACTIONS (1)
  - Haemoglobin decreased [None]
